FAERS Safety Report 10231838 (Version 1)
Quarter: 2014Q2

REPORT INFORMATION
  Report Type: Spontaneous
  Country: US (occurrence: US)
  Receive Date: 20140612
  Receipt Date: 20140612
  Transmission Date: 20141212
  Serious: Yes (Other)
  Sender: FDA-Public Use
  Company Number: US-JNJCP-30000222769

PATIENT
  Sex: Female

DRUGS (3)
  1. NEUTROGENA ULTRA SHEER SUNBLOCK SPF85 [Suspect]
     Indication: PROPHYLAXIS
     Dosage: SMALL AMOUNT APPLIED ON THE ARMS, ONCE PER DAY
     Route: 061
     Dates: start: 20140521, end: 20140522
  2. ALLEGRA [Concomitant]
     Indication: PRODUCT USED FOR UNKNOWN INDICATION
     Dosage: ONE A DAY
  3. ASTHMA INHALER [Concomitant]
     Indication: ASTHMA
     Dosage: AS NEEDED

REACTIONS (5)
  - Application site pruritus [Recovering/Resolving]
  - Application site erythema [Not Recovered/Not Resolved]
  - Application site papules [Not Recovered/Not Resolved]
  - Throat tightness [Recovered/Resolved]
  - Hypersensitivity [None]
